FAERS Safety Report 9901986 (Version 3)
Quarter: 2014Q1

REPORT INFORMATION
  Report Type: Spontaneous
  Country: JP (occurrence: JP)
  Receive Date: 20140217
  Receipt Date: 20140321
  Transmission Date: 20141002
  Serious: Yes (Hospitalization)
  Sender: FDA-Public Use
  Company Number: PHJP2013JP000444

PATIENT
  Age: 63 Year
  Sex: Female
  Weight: 43 kg

DRUGS (10)
  1. TEGRETOL TAB 200MG [Suspect]
     Indication: EPILEPSY
     Dosage: 100 MG, DAILY
     Route: 048
     Dates: start: 20131023, end: 20131101
  2. TEGRETOL TAB 200MG [Suspect]
     Dosage: 200 MG, DAILY
     Route: 048
     Dates: start: 20131102, end: 20131218
  3. AMLODIN [Suspect]
     Indication: HYPERTENSION
     Dosage: 2.5 MG, TID
     Route: 048
     Dates: start: 20131130, end: 20131213
  4. WARFARIN [Concomitant]
     Indication: CEREBRAL INFARCTION
     Dosage: 4 MG, QD
     Route: 048
     Dates: start: 20130608
  5. RENIVACE [Concomitant]
     Indication: HYPERTENSION
     Dosage: 2.5 MG, QD
     Route: 048
     Dates: start: 20130722
  6. IRBETAN [Concomitant]
     Indication: HYPERTENSION
     Dosage: 50 MG, QD
     Route: 048
     Dates: start: 20130607
  7. SLOW-K [Concomitant]
     Indication: HYPOKALAEMIA
     Dosage: 600 MG, QD
     Route: 048
     Dates: start: 20130816
  8. MYONAL [Concomitant]
     Indication: MUSCLE TIGHTNESS
     Dosage: 50 MG, QID
     Route: 048
     Dates: start: 20130713
  9. LAC-B GRANULAR POWDER N [Concomitant]
     Indication: DIARRHOEA
     Dosage: 1 G, TID
     Route: 048
     Dates: start: 20130608
  10. HALCION [Concomitant]
     Indication: INSOMNIA
     Dosage: 0.25 MG, QD
     Route: 048
     Dates: start: 20130717

REACTIONS (19)
  - Oral mucosal eruption [Unknown]
  - Blood potassium decreased [Unknown]
  - Monocyte count increased [Unknown]
  - Basophil count increased [Unknown]
  - Lymphocyte count decreased [Recovered/Resolved]
  - Hypophagia [Unknown]
  - Decreased appetite [Unknown]
  - Blood lactate dehydrogenase increased [Recovered/Resolved]
  - Rash generalised [Recovered/Resolved]
  - Erythema [Recovering/Resolving]
  - Pruritus [Recovering/Resolving]
  - Eosinophil count increased [Recovered/Resolved]
  - Hepatic function abnormal [Recovering/Resolving]
  - Blood bilirubin increased [Recovering/Resolving]
  - Gamma-glutamyltransferase increased [Recovering/Resolving]
  - Aspartate aminotransferase increased [Recovered/Resolved]
  - Alanine aminotransferase increased [Recovered/Resolved]
  - Blood alkaline phosphatase increased [Recovered/Resolved]
  - Blood sodium decreased [Recovered/Resolved]
